FAERS Safety Report 17534523 (Version 1)
Quarter: 2020Q1

REPORT INFORMATION
  Report Type: Spontaneous
  Country: PL (occurrence: PL)
  Receive Date: 20200312
  Receipt Date: 20200312
  Transmission Date: 20200409
  Serious: No
  Sender: FDA-Public Use
  Company Number: PL-B.BRAUN MEDICAL INC.-2081566

PATIENT
  Age: 3 Year
  Sex: Male
  Weight: 5.26 kg

DRUGS (1)
  1. DEXTROSE INJECTIONS USP 0264-7510-00 0264-7510-20 [Suspect]
     Active Substance: DEXTROSE

REACTIONS (2)
  - Extravasation [Recovering/Resolving]
  - Oedema [Recovering/Resolving]
